FAERS Safety Report 9129837 (Version 1)
Quarter: 2013Q1

REPORT INFORMATION
  Report Type: Spontaneous
  Country: IT (occurrence: IT)
  Receive Date: 20130125
  Receipt Date: 20130125
  Transmission Date: 20140127
  Serious: Yes (Hospitalization)
  Sender: FDA-Public Use
  Company Number: IT-PFIZER INC-2013033286

PATIENT
  Age: 16 Year
  Sex: Female

DRUGS (2)
  1. XANAX [Suspect]
     Indication: ABNORMAL BEHAVIOUR
     Dosage: 7 MG, TOTAL DOSE
     Route: 048
     Dates: start: 20130107, end: 20130107
  2. CITALOPRAM [Concomitant]
     Indication: ABNORMAL BEHAVIOUR
     Dosage: 16 GTT, UNK
     Route: 048
     Dates: start: 20130107

REACTIONS (2)
  - Toxicity to various agents [Unknown]
  - Off label use [Unknown]
